FAERS Safety Report 14771962 (Version 1)
Quarter: 2018Q2

REPORT INFORMATION
  Report Type: Spontaneous
  Country: US (occurrence: US)
  Receive Date: 20180417
  Receipt Date: 20180417
  Transmission Date: 20180711
  Serious: No
  Sender: FDA-Public Use
  Company Number: US-009507513-1804USA002545

PATIENT
  Sex: Female

DRUGS (5)
  1. GABAPENTIN. [Concomitant]
     Active Substance: GABAPENTIN
  2. ATENOLOL. [Concomitant]
     Active Substance: ATENOLOL
  3. ASMANEX [Suspect]
     Active Substance: MOMETASONE FUROATE
     Indication: BRONCHIECTASIS
     Dosage: 1 PUFF, TWICE DAILY
     Route: 055
  4. CRESTOR [Concomitant]
     Active Substance: ROSUVASTATIN CALCIUM
  5. LOSARTAN. [Concomitant]
     Active Substance: LOSARTAN

REACTIONS (5)
  - Drug dose omission [Unknown]
  - Product use in unapproved indication [Unknown]
  - Extra dose administered [Unknown]
  - Product quality issue [Not Recovered/Not Resolved]
  - Nasopharyngitis [Not Recovered/Not Resolved]
